FAERS Safety Report 24253624 (Version 2)
Quarter: 2024Q3

REPORT INFORMATION
  Report Type: Spontaneous
  Country: US (occurrence: US)
  Receive Date: 20240827
  Receipt Date: 20240911
  Transmission Date: 20241016
  Serious: No
  Sender: TORRENT
  Company Number: US-TORRENT-00013727

PATIENT
  Age: 21 Year
  Sex: Female
  Weight: 56 kg

DRUGS (2)
  1. DAPSONE [Suspect]
     Active Substance: DAPSONE
     Indication: Acne
     Dosage: UNKNOWN
     Route: 065
  2. SPIRONOLACTONE [Concomitant]
     Active Substance: SPIRONOLACTONE
     Indication: Acne
     Dosage: UNKNOWN
     Route: 065

REACTIONS (3)
  - Erythema [Recovered/Resolved]
  - Product quality issue [Unknown]
  - Skin irritation [Unknown]
